FAERS Safety Report 16158836 (Version 4)
Quarter: 2019Q3

REPORT INFORMATION
  Report Type: Report from Study
  Country: DE (occurrence: DE)
  Receive Date: 20190404
  Receipt Date: 20190819
  Transmission Date: 20191004
  Serious: Yes (Hospitalization)
  Sender: FDA-Public Use
  Company Number: DE-SA-2019SA086155

PATIENT
  Age: 30 Year
  Sex: Female
  Weight: 58 kg

DRUGS (3)
  1. ALEMTUZUMAB [Suspect]
     Active Substance: ALEMTUZUMAB
     Indication: RELAPSING-REMITTING MULTIPLE SCLEROSIS
     Dosage: 12 MG; QD 18 ML / HAS HEADACHE UNDER 95 ML /H
     Route: 041
     Dates: start: 20190304, end: 20190308
  2. ACICLOVIR [Concomitant]
     Active Substance: ACYCLOVIR
     Dosage: 2X200 MG
     Route: 048
     Dates: start: 20190331
  3. CORTISONE [Concomitant]
     Active Substance: CORTISONE
     Dosage: UNK
     Route: 065
     Dates: start: 201903, end: 201903

REACTIONS (16)
  - Thyroid hormones increased [Unknown]
  - Dysphagia [Unknown]
  - Aphthous ulcer [Unknown]
  - Product use issue [Unknown]
  - Exposure during pregnancy [Unknown]
  - Urticaria [Unknown]
  - Head discomfort [Unknown]
  - Blood immunoglobulin M increased [Unknown]
  - Rash pustular [Unknown]
  - Eating disorder [Unknown]
  - Drug intolerance [Unknown]
  - Blood immunoglobulin G increased [Unknown]
  - Investigation abnormal [Unknown]
  - Pruritus [Unknown]
  - Blood thyroid stimulating hormone increased [Unknown]
  - Dry skin [Unknown]

NARRATIVE: CASE EVENT DATE: 20190301
